FAERS Safety Report 9667174 (Version 1)
Quarter: 2013Q4

REPORT INFORMATION
  Report Type: Spontaneous
  Country: US (occurrence: US)
  Receive Date: 20131104
  Receipt Date: 20131104
  Transmission Date: 20140711
  Serious: No
  Sender: FDA-Public Use
  Company Number: US-BIOGENIDEC-2013BI090333

PATIENT
  Age: 60 Year
  Sex: Female

DRUGS (1)
  1. TECFIDERA [Suspect]
     Indication: RELAPSING-REMITTING MULTIPLE SCLEROSIS
     Route: 048
     Dates: start: 20130819

REACTIONS (5)
  - Headache [Recovered/Resolved]
  - Aphagia [Recovered/Resolved]
  - Malaise [Unknown]
  - Drug interaction [Unknown]
  - Nausea [Recovered/Resolved]
